FAERS Safety Report 9026394 (Version 2)
Quarter: 2013Q1

REPORT INFORMATION
  Report Type: Spontaneous
  Country: AR (occurrence: AR)
  Receive Date: 20130123
  Receipt Date: 20130128
  Transmission Date: 20140127
  Serious: Yes (Other)
  Sender: FDA-Public Use
  Company Number: PHHY2013AR005798

PATIENT
  Sex: Male

DRUGS (1)
  1. EXFORGE [Suspect]
     Indication: HYPERTENSION
     Dosage: 1 DF (160/10 MG) DAILY
     Route: 048

REACTIONS (4)
  - Cardiac valve disease [Unknown]
  - Chest pain [Recovered/Resolved]
  - Depressed mood [Unknown]
  - Malaise [Recovered/Resolved]
